FAERS Safety Report 7280139-6 (Version None)
Quarter: 2011Q1

REPORT INFORMATION
  Report Type: 
  Country: None (occurrence: None)
  Receive Date: 20110208
  Receipt Date: 20110131
  Transmission Date: 20110831
  Serious: Yes (Hospitalization)
  Sender: FDA-Public Use
  Company Number: FR-JNJFOC-20101102392

PATIENT
  Sex: Male

DRUGS (21)
  1. BRICANYL [Concomitant]
     Indication: ILL-DEFINED DISORDER
     Route: 065
  2. BRICANYL [Concomitant]
     Route: 065
  3. TRAMADOL HCL [Suspect]
     Indication: PRODUCT USED FOR UNKNOWN INDICATION
     Route: 048
  4. TRAMADOL HCL [Suspect]
     Route: 048
  5. AMLOR [Concomitant]
     Indication: ILL-DEFINED DISORDER
     Route: 065
  6. ASPEGIC 325 [Concomitant]
     Indication: ILL-DEFINED DISORDER
     Route: 065
  7. SECTRAL [Concomitant]
     Indication: ILL-DEFINED DISORDER
     Route: 065
  8. DURAGESIC-100 [Suspect]
     Indication: PRODUCT USED FOR UNKNOWN INDICATION
     Route: 062
  9. BUFLOMEDIL [Suspect]
     Indication: ILL-DEFINED DISORDER
     Route: 048
  10. ATROVENT [Concomitant]
     Route: 065
  11. EFFERALGAN [Concomitant]
     Route: 065
  12. SECTRAL [Concomitant]
     Route: 065
  13. LYSANXIA [Concomitant]
     Indication: ILL-DEFINED DISORDER
     Route: 065
  14. LYSANXIA [Concomitant]
     Route: 065
  15. ZOCOR [Concomitant]
     Indication: ILL-DEFINED DISORDER
     Route: 065
  16. PAROXETINE HCL [Concomitant]
     Indication: ILL-DEFINED DISORDER
     Route: 065
  17. ASPEGIC 325 [Concomitant]
     Route: 065
  18. OMEPRAZOLE [Concomitant]
     Indication: ILL-DEFINED DISORDER
     Route: 065
  19. OMEPRAZOLE [Concomitant]
     Route: 065
  20. ATROVENT [Concomitant]
     Indication: ILL-DEFINED DISORDER
     Route: 065
  21. EFFERALGAN [Concomitant]
     Indication: ILL-DEFINED DISORDER
     Route: 065

REACTIONS (1)
  - VASCULAR PURPURA [None]
